FAERS Safety Report 4582187-3 (Version None)
Quarter: 2005Q1

REPORT INFORMATION
  Report Type: 
  Country: None (occurrence: None)
  Receive Date: 20050211
  Receipt Date: 20050202
  Transmission Date: 20050727
  Serious: Yes (Other)
  Sender: FDA-Public Use
  Company Number: 05-02-0195

PATIENT
  Age: 62 Year
  Sex: Female
  Weight: 88 kg

DRUGS (9)
  1. METFORMIN HCL [Suspect]
     Indication: DIABETES MELLITUS
     Dosage: 2G ORAL
     Route: 048
     Dates: start: 20010223, end: 20040428
  2. DILTIAZEM [Concomitant]
  3. PERINDOPRIL [Concomitant]
  4. FRUMIL [Concomitant]
  5. LOSARTAN POTASSIUM [Concomitant]
  6. DOXAZOSIN [Concomitant]
  7. ASPIRIN [Concomitant]
  8. ATORVASTATIN [Concomitant]
  9. CO-PROXAMOL [Concomitant]

REACTIONS (8)
  - ACIDOSIS [None]
  - BEREAVEMENT REACTION [None]
  - BLOOD LACTIC ACID INCREASED [None]
  - CARDIAC ARREST [None]
  - HYPERKALAEMIA [None]
  - LACTIC ACIDOSIS [None]
  - ORAL INTAKE REDUCED [None]
  - RENAL FAILURE ACUTE [None]
